FAERS Safety Report 6909021-8 (Version None)
Quarter: 2010Q3

REPORT INFORMATION
  Report Type: 
  Country: None (occurrence: None)
  Receive Date: 20100805
  Receipt Date: 20100802
  Transmission Date: 20110219
  Serious: Yes (Hospitalization, Other)
  Sender: FDA-Public Use
  Company Number: AU-ROXANE LABORATORIES, INC.-2010-RO-00952RO

PATIENT
  Age: 2 Year
  Sex: Male
  Weight: 14 kg

DRUGS (2)
  1. LAMOTRIGINE [Suspect]
     Route: 048
  2. ELEVIT [Suspect]
     Route: 048

REACTIONS (8)
  - CONVULSION [None]
  - DRUG TOXICITY [None]
  - HUNGER [None]
  - HYPERREFLEXIA [None]
  - IRRITABILITY [None]
  - NYSTAGMUS [None]
  - SOMNOLENCE [None]
  - VOMITING [None]
